FAERS Safety Report 4641919-6 (Version None)
Quarter: 2005Q2

REPORT INFORMATION
  Report Type: 
  Country: None (occurrence: None)
  Receive Date: 20050421
  Receipt Date: 20050407
  Transmission Date: 20051028
  Serious: Yes (Hospitalization, Other)
  Sender: FDA-Public Use
  Company Number: 2005057102

PATIENT
  Sex: Female
  Weight: 52.1637 kg

DRUGS (3)
  1. CELEBREX [Suspect]
     Indication: OSTEOARTHRITIS
     Dosage: 200 MG (200 MG, 1 IN 1 D), ORAL
     Route: 048
     Dates: end: 20040930
  2. BEXTRA [Suspect]
     Indication: SCIATIC NERVE NEUROPATHY
     Dosage: ORAL
     Route: 048
     Dates: start: 20040809
  3. HYOSCYAMINE (HYOSCYAMINE) [Concomitant]

REACTIONS (11)
  - ABDOMINAL PAIN UPPER [None]
  - ANOREXIA [None]
  - ARTHRALGIA [None]
  - BLOOD POTASSIUM DECREASED [None]
  - CHEST PAIN [None]
  - LOSS OF CONSCIOUSNESS [None]
  - NAUSEA [None]
  - SCIATICA [None]
  - SINUS HEADACHE [None]
  - STOMACH DISCOMFORT [None]
  - URINARY TRACT INFECTION [None]
